FAERS Safety Report 6179369-6 (Version None)
Quarter: 2009Q2

REPORT INFORMATION
  Report Type: 
  Country: None (occurrence: None)
  Receive Date: 20090505
  Receipt Date: 20090427
  Transmission Date: 20091009
  Serious: Yes (Other)
  Sender: FDA-Public Use
  Company Number: US-ABBOTT-09P-163-0570115-00

PATIENT
  Sex: Female
  Weight: 90.8 kg

DRUGS (15)
  1. HUMIRA [Suspect]
     Indication: ANKYLOSING SPONDYLITIS
     Route: 058
     Dates: start: 20090301
  2. HUMIRA [Suspect]
     Route: 058
  3. HUMIRA [Suspect]
     Dosage: WEEKLY
     Route: 058
  4. HUMIRA [Suspect]
     Route: 058
     Dates: end: 20090301
  5. CELEBREX [Concomitant]
     Indication: ANKYLOSING SPONDYLITIS
     Dosage: TWO TIMES A DAY
     Route: 048
  6. BACLOFEN [Concomitant]
     Indication: ANKYLOSING SPONDYLITIS
     Dosage: THREE TIMES A DAY
     Route: 048
  7. MULTI-VITAMIN [Concomitant]
     Indication: DRUG USE FOR UNKNOWN INDICATION
  8. PRILOSEC [Concomitant]
     Indication: DRUG USE FOR UNKNOWN INDICATION
     Dosage: DAILY
     Route: 048
  9. CLARITIN [Concomitant]
     Indication: DRUG USE FOR UNKNOWN INDICATION
     Dosage: DAILY
     Route: 048
  10. CALCIUM [Concomitant]
     Indication: DRUG USE FOR UNKNOWN INDICATION
     Dosage: DAILY
  11. TRIAMTERENE [Concomitant]
     Indication: OSTEOPOROSIS
     Dosage: DAILY
     Route: 048
  12. LEVOTHYROXINE SODIUM [Concomitant]
     Indication: THYROID DISORDER
     Dosage: DAILY
     Route: 048
  13. ATENOLOL [Concomitant]
     Indication: BLOOD PRESSURE INCREASED
     Dosage: DAILY
     Route: 048
  14. BONIVA [Concomitant]
     Indication: OSTEOPOROSIS
     Dosage: 1 INJECTION ONCE EVERY 90 DAYS
     Route: 050
  15. EPIPEN [Concomitant]
     Indication: ALLERGY TO ARTHROPOD STING

REACTIONS (4)
  - ABASIA [None]
  - ARTHRALGIA [None]
  - OSTEOARTHRITIS [None]
  - PAIN [None]
